FAERS Safety Report 18664733 (Version 1)
Quarter: 2020Q4

REPORT INFORMATION
  Report Type: Spontaneous
  Country: CZ (occurrence: CZ)
  Receive Date: 20201225
  Receipt Date: 20201225
  Transmission Date: 20210114
  Serious: Yes (Hospitalization, Other)
  Sender: FDA-Public Use
  Company Number: NVSC2020CZ341110

PATIENT
  Age: 86 Year
  Sex: Female

DRUGS (46)
  1. ZOLPIDEM [Suspect]
     Active Substance: ZOLPIDEM TARTRATE
     Indication: DRUG ABUSE
     Dosage: UNK
     Route: 065
  2. GUTTALAX [SODIUM PICOSULFATE] [Suspect]
     Active Substance: SODIUM PICOSULFATE
     Indication: CONSTIPATION
     Dosage: 1 DF (10-12, 10-20 GUTTES)
     Route: 048
  3. ELIQUIS [Interacting]
     Active Substance: APIXABAN
     Indication: ANTICOAGULANT THERAPY
     Dosage: 5 MG, QD
     Route: 048
  4. DUROGESIC [Interacting]
     Active Substance: FENTANYL
     Indication: PAIN
     Dosage: 25 UG, Q72H
     Route: 065
     Dates: start: 2015
  5. EUTHYROX [Interacting]
     Active Substance: LEVOTHYROXINE SODIUM
     Indication: AUTOIMMUNE THYROIDITIS
     Dosage: 100 UG, QW (1-0-0 EXCEPT SUNDAY)
     Route: 048
  6. POTASSIUM ASPARTATE [Suspect]
     Active Substance: POTASSIUM ASPARTATE
     Indication: PRODUCT USED FOR UNKNOWN INDICATION
     Dosage: UNK
     Route: 065
  7. GUAJACURAN [Suspect]
     Active Substance: GUAIFENESIN
     Indication: HYPERTENSION
     Dosage: UNK
     Route: 042
  8. ACIDUM FOLICUM [Interacting]
     Active Substance: FOLIC ACID
     Dosage: 1 DF, QW (ON MONDAY)
     Route: 048
  9. TEZEO [Interacting]
     Active Substance: TELMISARTAN
     Indication: PRODUCT USED FOR UNKNOWN INDICATION
     Dosage: UNK, QD (90/12.5 MG)
     Route: 065
  10. TEZEO [Interacting]
     Active Substance: TELMISARTAN
     Dosage: 1 DF, QD (1-0-0; 12.5 MG/80 MG)
     Route: 048
  11. DUROGESIC [Interacting]
     Active Substance: FENTANYL
     Dosage: 75 UG, QD (25 MICROGRAM, Q72H)
     Route: 062
  12. HYPNOGEN [Suspect]
     Active Substance: ZOLPIDEM TARTRATE
     Indication: DRUG ABUSE
     Dosage: UNK
     Route: 065
  13. PREGABALIN. [Concomitant]
     Active Substance: PREGABALIN
     Indication: POST HERPETIC NEURALGIA
     Dosage: UNK
     Route: 065
  14. METHOTREXATE. [Suspect]
     Active Substance: METHOTREXATE
     Indication: RHEUMATOID ARTHRITIS
     Dosage: 10 MG, QW
     Route: 048
     Dates: start: 2010
  15. METAMIZOLE SODIUM [Suspect]
     Active Substance: METAMIZOLE SODIUM
     Dosage: 500 MG, BID
     Route: 065
  16. ORAMELLOX [Interacting]
     Active Substance: MELOXICAM
     Indication: PAIN
     Dosage: 15 MG, Q3W(1 TBL IF PAIN, APP. 3 TIMES A WEEK)
     Route: 065
     Dates: start: 2015
  17. ELIQUIS [Interacting]
     Active Substance: APIXABAN
     Dosage: 5 MG, BID
     Route: 065
  18. EUTHYROX [Interacting]
     Active Substance: LEVOTHYROXINE SODIUM
     Dosage: 100 MG, QD
     Route: 048
  19. OXAZEPAM. [Suspect]
     Active Substance: OXAZEPAM
     Indication: DRUG ABUSE
  20. PREDNISONE. [Suspect]
     Active Substance: PREDNISONE
     Dosage: UNK
     Route: 065
  21. AGEN [Interacting]
     Active Substance: AMLODIPINE BESYLATE
     Indication: HYPERTENSION
     Dosage: 5 MG, QD
     Route: 048
  22. BETALOC ZOK [Interacting]
     Active Substance: METOPROLOL SUCCINATE
     Dosage: 25 MG, QD
     Route: 065
  23. IBALGIN [Suspect]
     Active Substance: IBUPROFEN
     Indication: PAIN
     Dosage: UNK
     Route: 065
  24. MAGNESIUM ASPARTATE [Suspect]
     Active Substance: MAGNESIUM ASPARTATE
     Indication: PRODUCT USED FOR UNKNOWN INDICATION
     Dosage: UNK
     Route: 065
  25. HYPNOGEN [Suspect]
     Active Substance: ZOLPIDEM TARTRATE
     Indication: INSOMNIA
  26. METAMIZOLE SODIUM [Suspect]
     Active Substance: METAMIZOLE SODIUM
     Indication: POST HERPETIC NEURALGIA
     Dosage: 500 MG, QD
     Route: 048
     Dates: start: 2015
  27. ORAMELLOX [Interacting]
     Active Substance: MELOXICAM
     Indication: POST HERPETIC NEURALGIA
     Dosage: 1 DF, QW
     Route: 065
     Dates: start: 2015
  28. CALCICHEW D3 [Interacting]
     Active Substance: CALCIUM\CHOLECALCIFEROL
     Indication: CALCIUM DEFICIENCY
     Dosage: 1 DF, QD
     Route: 048
  29. NOVALGIN (METAMIZOLE SODIUM) [Suspect]
     Active Substance: METAMIZOLE SODIUM
     Indication: PRODUCT USED FOR UNKNOWN INDICATION
     Dosage: 500 MG, Q12H
     Route: 065
  30. PANADOL [Interacting]
     Active Substance: ACETAMINOPHEN
     Indication: PAIN
     Dosage: 1.5 DF (3-4 TIMES PER DAY)
     Route: 065
  31. PANADOL [Interacting]
     Active Substance: ACETAMINOPHEN
     Dosage: 750 MG, QD (1.5 TABLETS 3-4 TIMES A DAY)
     Route: 048
  32. CARDILAN [NICOFURANOSE] [Interacting]
     Active Substance: NICOFURANOSE
     Indication: PRODUCT USED FOR UNKNOWN INDICATION
     Dosage: 1 DF, QD
     Route: 048
  33. BETALOC ZOK [Interacting]
     Active Substance: METOPROLOL SUCCINATE
     Indication: PRODUCT USED FOR UNKNOWN INDICATION
     Dosage: 20 MG, QD
     Route: 065
  34. ACIDUM FOLICUM [Interacting]
     Active Substance: FOLIC ACID
     Indication: PRODUCT USED FOR UNKNOWN INDICATION
     Dosage: 1 DF, QD
     Route: 065
  35. CORDARONE [Interacting]
     Active Substance: AMIODARONE HYDROCHLORIDE
     Indication: PRODUCT USED FOR UNKNOWN INDICATION
     Dosage: 200 MG, QD
     Route: 048
  36. ROSUCARD [Interacting]
     Active Substance: ROSUVASTATIN CALCIUM
     Indication: PRODUCT USED FOR UNKNOWN INDICATION
     Dosage: 20 MG, QD
     Route: 048
  37. TEZEO [Interacting]
     Active Substance: TELMISARTAN
     Dosage: 1 DF
     Route: 065
  38. CONDROSULF [Suspect]
     Active Substance: SODIUM CHONDROITIN SULFATE
     Indication: PRODUCT USED FOR UNKNOWN INDICATION
     Dosage: 800 MG, QD
     Route: 065
  39. STILNOX [Suspect]
     Active Substance: ZOLPIDEM TARTRATE
     Indication: DRUG ABUSE
     Dosage: UNK, OVER USED
     Route: 065
  40. TRAMADOL. [Suspect]
     Active Substance: TRAMADOL
     Indication: PAIN
     Dosage: UNK
     Route: 065
  41. PREDNISONE. [Suspect]
     Active Substance: PREDNISONE
     Indication: STEROID THERAPY
     Dosage: 5 MG, QD
     Route: 048
  42. ACIDUM FOLICUM [Interacting]
     Active Substance: FOLIC ACID
     Dosage: UNK, QD
     Route: 065
  43. CONTROLOC [Interacting]
     Active Substance: PANTOPRAZOLE SODIUM
     Indication: PRODUCT USED FOR UNKNOWN INDICATION
     Dosage: 20 MG, QD
     Route: 048
  44. CALCICHEW D3 [Interacting]
     Active Substance: CALCIUM\CHOLECALCIFEROL
     Dosage: UNK, QD
     Route: 065
  45. OXAZEPAM. [Suspect]
     Active Substance: OXAZEPAM
     Indication: ANXIETY
     Dosage: UNK
     Route: 065
  46. BISACODYL. [Interacting]
     Active Substance: BISACODYL
     Indication: CONSTIPATION
     Dosage: 10-20 GTT IN THE EVENING
     Route: 065

REACTIONS (44)
  - Restlessness [Recovered/Resolved]
  - Contusion [Recovered/Resolved]
  - Dizziness [Recovered/Resolved]
  - General physical health deterioration [Recovering/Resolving]
  - Encephalopathy [Recovering/Resolving]
  - Pelvic fracture [Recovered/Resolved]
  - Anxiety [Recovered/Resolved]
  - Condition aggravated [Recovered/Resolved]
  - Hypertension [Recovered/Resolved]
  - Sleep disorder [Recovered/Resolved]
  - Apathy [Recovering/Resolving]
  - Hypoacusis [Recovered/Resolved]
  - Listless [Recovering/Resolving]
  - Liver function test increased [Recovering/Resolving]
  - Cognitive disorder [Recovered/Resolved]
  - Dehydration [Recovered/Resolved]
  - Drug interaction [Unknown]
  - Vertigo [Recovering/Resolving]
  - Foreign body [Recovered/Resolved]
  - Delirium [Recovered/Resolved]
  - Hepatic enzyme increased [Recovered/Resolved]
  - Overdose [Unknown]
  - Intentional product misuse [Recovered/Resolved]
  - Deafness [Recovered/Resolved]
  - Atrial fibrillation [Recovering/Resolving]
  - Affect lability [Recovered/Resolved]
  - Confusional state [Recovered/Resolved]
  - Nausea [Recovered/Resolved]
  - Reduced facial expression [Recovered/Resolved]
  - Discomfort [Recovered/Resolved]
  - Fracture [Recovered/Resolved]
  - Fall [Recovering/Resolving]
  - Head discomfort [Recovering/Resolving]
  - Hypokalaemia [Recovered/Resolved]
  - Mobility decreased [Recovered/Resolved]
  - Urinary retention [Recovered/Resolved]
  - Confusional state [Recovered/Resolved]
  - Cerebral atrophy [Recovered/Resolved]
  - Oxygen saturation decreased [Recovering/Resolving]
  - Medication error [Unknown]
  - Cognitive disorder [Recovering/Resolving]
  - Hyponatraemia [Recovering/Resolving]
  - Oxygen saturation decreased [Recovered/Resolved]
  - Hypertension [Recovering/Resolving]

NARRATIVE: CASE EVENT DATE: 2018
